FAERS Safety Report 10383448 (Version 2)
Quarter: 2014Q3

REPORT INFORMATION
  Report Type: Spontaneous
  Country: US (occurrence: US)
  Receive Date: 20140814
  Receipt Date: 20140814
  Transmission Date: 20150326
  Serious: Yes (Hospitalization, Other)
  Sender: FDA-Public Use
  Company Number: US-UNITED THERAPEUTICS-UNT-2014-003699

PATIENT
  Age: 40 Year
  Sex: Male
  Weight: 86.62 kg

DRUGS (4)
  1. WARFARIN [Concomitant]
     Active Substance: WARFARIN
     Indication: PRODUCT USED FOR UNKNOWN INDICATION
  2. ADCIRCA [Concomitant]
     Active Substance: TADALAFIL
     Indication: PRODUCT USED FOR UNKNOWN INDICATION
  3. REMODULIN [Suspect]
     Active Substance: TREPROSTINIL
     Indication: PULMONARY ARTERIAL HYPERTENSION
     Dosage: 0.040 ?G/KG, CONTINUING
     Route: 041
     Dates: start: 20131216
  4. REVATIO [Concomitant]
     Active Substance: SILDENAFIL CITRATE
     Indication: PRODUCT USED FOR UNKNOWN INDICATION

REACTIONS (9)
  - Amphetamines positive [Unknown]
  - Dyspnoea [Unknown]
  - Device related infection [Recovering/Resolving]
  - Liver function test abnormal [Unknown]
  - Fluid overload [Unknown]
  - Thrombosis [Unknown]
  - Pyrexia [Unknown]
  - Pulmonary embolism [Unknown]
  - Device dislocation [Unknown]

NARRATIVE: CASE EVENT DATE: 2014
